FAERS Safety Report 23924830 (Version 3)
Quarter: 2025Q3

REPORT INFORMATION
  Report Type: Spontaneous
  Country: US (occurrence: US)
  Receive Date: 20240531
  Receipt Date: 20250922
  Transmission Date: 20251020
  Serious: No
  Sender: PFIZER
  Company Number: US-PFIZER INC-202400099235

PATIENT
  Age: 73 Year
  Sex: Female
  Weight: 112.49 kg

DRUGS (1)
  1. IBRANCE [Suspect]
     Active Substance: PALBOCICLIB
     Indication: Bone cancer metastatic

REACTIONS (4)
  - Peripheral swelling [Unknown]
  - Pain in extremity [Unknown]
  - Product dose omission in error [Unknown]
  - Off label use [Unknown]
